FAERS Safety Report 5302731-8 (Version None)
Quarter: 2007Q2

REPORT INFORMATION
  Report Type: 
  Country: None (occurrence: None)
  Receive Date: 20070419
  Receipt Date: 20070410
  Transmission Date: 20071010
  Serious: Yes (Congenital Anomaly)
  Sender: FDA-Public Use
  Company Number: US-PFIZER INC-2007029223

PATIENT
  Sex: Male

DRUGS (1)
  1. PROVERA [Suspect]
     Indication: AMENORRHOEA
     Route: 064
     Dates: start: 19801001, end: 19801001

REACTIONS (3)
  - CONGENITAL GENITOURINARY ABNORMALITY [None]
  - DRUG EXPOSURE DURING PREGNANCY [None]
  - GASTROINTESTINAL DISORDER CONGENITAL [None]
